FAERS Safety Report 5190382-8 (Version None)
Quarter: 2006Q4

REPORT INFORMATION
  Report Type: 
  Country: None (occurrence: None)
  Receive Date: 20061222
  Receipt Date: 20050630
  Transmission Date: 20070319
  Serious: Yes (Congenital Anomaly)
  Sender: FDA-Public Use
  Company Number: GB-ROCHE-409326

PATIENT
  Age: 31 Year
  Sex: Female
  Weight: 60.5 kg

DRUGS (7)
  1. FUZEON [Suspect]
     Route: 058
  2. VALGANCICLOVIR HCL [Suspect]
     Route: 065
     Dates: start: 20040915
  3. DIDANOSINE [Suspect]
     Route: 048
     Dates: end: 20040109
  4. REYATAZ [Suspect]
     Route: 048
  5. NORVIR [Suspect]
     Route: 048
  6. LAMIVUDINE [Suspect]
     Route: 048
  7. COTRIM D.S. [Concomitant]
     Dosage: STARTED BEFORE 2004.
     Dates: start: 20040615

REACTIONS (5)
  - ABORTION SPONTANEOUS [None]
  - DRUG EXPOSURE DURING PREGNANCY [None]
  - INTRA-UTERINE DEATH [None]
  - PLACENTAL INFARCTION [None]
  - UMBILICAL CORD ABNORMALITY [None]
